FAERS Safety Report 24218202 (Version 5)
Quarter: 2025Q1

REPORT INFORMATION
  Report Type: Spontaneous
  Country: US (occurrence: US)
  Receive Date: 20240816
  Receipt Date: 20250109
  Transmission Date: 20250409
  Serious: No
  Sender: PFIZER
  Company Number: US-PFIZER INC-202400236000

PATIENT
  Age: 88 Year
  Sex: Female

DRUGS (14)
  1. IBRANCE [Suspect]
     Active Substance: PALBOCICLIB
  2. IBRANCE [Suspect]
     Active Substance: PALBOCICLIB
     Dates: start: 20240617
  3. IBRANCE [Suspect]
     Active Substance: PALBOCICLIB
     Route: 048
     Dates: start: 20240717
  4. ENSURE [Concomitant]
     Active Substance: AMINO ACIDS\DEXTROSE\ELECTROLYTES NOS\SOYBEAN OIL\VITAMINS
  5. ARIMIDEX [Concomitant]
     Active Substance: ANASTROZOLE
  6. BREO ELLIPTA [Concomitant]
     Active Substance: FLUTICASONE FUROATE\VILANTEROL TRIFENATATE
  7. CARVEDILOL [Concomitant]
     Active Substance: CARVEDILOL
  8. FASLODEX [Concomitant]
     Active Substance: FULVESTRANT
  9. LOPERAMIDE [Concomitant]
     Active Substance: LOPERAMIDE
  10. LOSARTAN [Concomitant]
     Active Substance: LOSARTAN
  11. ONDANSETRON [Concomitant]
     Active Substance: ONDANSETRON
  12. PROLIA [Concomitant]
     Active Substance: DENOSUMAB
  13. SIMVASTATIN [Concomitant]
     Active Substance: SIMVASTATIN
  14. SYNTHROID [Concomitant]
     Active Substance: LEVOTHYROXINE SODIUM

REACTIONS (8)
  - Cough [Recovering/Resolving]
  - White blood cell count decreased [Unknown]
  - Rash [Unknown]
  - Diarrhoea [Recovering/Resolving]
  - Fatigue [Unknown]
  - Anaemia [Recovering/Resolving]
  - Asthenia [Unknown]
  - Inappropriate schedule of product administration [Unknown]

NARRATIVE: CASE EVENT DATE: 20240807
